FAERS Safety Report 6980226-3 (Version None)
Quarter: 2010Q3

REPORT INFORMATION
  Report Type: 
  Country: None (occurrence: None)
  Receive Date: 20100914
  Receipt Date: 20100906
  Transmission Date: 20110219
  Serious: Yes (Death)
  Sender: FDA-Public Use
  Company Number: JP-ROCHE-705947

PATIENT
  Sex: Male
  Weight: 70 kg

DRUGS (2)
  1. XELODA [Suspect]
     Indication: COLON CANCER RECURRENT
     Dosage: IT WAS REPORTED THAT ONE ADMINISTERING WEEKLY HOLIDAY MEDICINE FOR TWO WEEKS.
     Route: 048
     Dates: start: 20100402, end: 20100503
  2. ELPLAT [Suspect]
     Indication: COLON CANCER RECURRENT
     Dosage: FORM: INJECTION, NOTE: DOSAGE IS UNCERTAIN
     Route: 041
     Dates: start: 20100402, end: 20100423

REACTIONS (6)
  - ACUTE RESPIRATORY FAILURE [None]
  - DECREASED APPETITE [None]
  - DIZZINESS [None]
  - NAUSEA [None]
  - PALMAR-PLANTAR ERYTHRODYSAESTHESIA SYNDROME [None]
  - VOMITING [None]
